FAERS Safety Report 21530422 (Version 2)
Quarter: 2022Q4

REPORT INFORMATION
  Report Type: Report from Study
  Country: CA (occurrence: None)
  Receive Date: 20221031
  Receipt Date: 20221104
  Transmission Date: 20230113
  Serious: Yes (Death, Other)
  Sender: FDA-Public Use
  Company Number: 2022A359929

PATIENT
  Age: 791 Month
  Sex: Female

DRUGS (1)
  1. LYNPARZA [Suspect]
     Active Substance: OLAPARIB
     Indication: Pancreatic carcinoma
     Route: 048
     Dates: start: 20211029, end: 202208

REACTIONS (2)
  - Death [Fatal]
  - Malignant neoplasm progression [Unknown]

NARRATIVE: CASE EVENT DATE: 20220801
